FAERS Safety Report 8211049-5 (Version None)
Quarter: 2012Q1

REPORT INFORMATION
  Report Type: 
  Country: None (occurrence: None)
  Receive Date: 20120315
  Receipt Date: 20120312
  Transmission Date: 20120608
  Serious: Yes (Other)
  Sender: FDA-Public Use
  Company Number: PHHY2012NZ021109

PATIENT
  Sex: Male

DRUGS (4)
  1. CLOZARIL [Suspect]
     Indication: SCHIZOPHRENIA
     Dosage: UNK
     Route: 048
     Dates: start: 20110524, end: 20120312
  2. QUETIAPINE [Concomitant]
  3. METFORMIN HCL [Concomitant]
  4. FLUOXETINE HCL [Concomitant]

REACTIONS (2)
  - WEIGHT INCREASED [None]
  - SLEEP APNOEA SYNDROME [None]
